FAERS Safety Report 23391431 (Version 1)
Quarter: 2024Q1

REPORT INFORMATION
  Report Type: Report from Study
  Country: CA (occurrence: CA)
  Receive Date: 20240111
  Receipt Date: 20240111
  Transmission Date: 20240410
  Serious: Yes (Other)
  Sender: FDA-Public Use
  Company Number: CA-CELLTRION INC.-2024CA000400

PATIENT

DRUGS (23)
  1. TRASTUZUMAB [Suspect]
     Active Substance: TRASTUZUMAB
     Indication: Breast cancer metastatic
     Dosage: 360 MG, 1 EVERY 6 WEEKS
     Route: 041
  2. TRASTUZUMAB [Suspect]
     Active Substance: TRASTUZUMAB
     Dosage: UNK
     Route: 041
  3. TRASTUZUMAB [Suspect]
     Active Substance: TRASTUZUMAB
     Dosage: 342 MG, 1 EVERY 3 WEEKS
     Route: 041
  4. TRASTUZUMAB [Suspect]
     Active Substance: TRASTUZUMAB
     Dosage: 456 MG, 1 EVERY 3 WEEKS
     Route: 041
  5. TRASTUZUMAB [Suspect]
     Active Substance: TRASTUZUMAB
     Dosage: 396 MG, 1 EVERY 3 WEEKS
     Route: 041
  6. TRASTUZUMAB [Suspect]
     Active Substance: TRASTUZUMAB
     Dosage: 342 MG, 1 EVERY 4 WEEKS
     Route: 041
  7. TRASTUZUMAB [Suspect]
     Active Substance: TRASTUZUMAB
     Dosage: 342 MG, 1 EVERY 3 WEEKS
     Route: 041
  8. AFINITOR [Concomitant]
     Active Substance: EVEROLIMUS
  9. AMLODIPINE [Concomitant]
     Active Substance: AMLODIPINE BESYLATE
     Dosage: 10 MG
     Route: 048
  10. ANASTROZOLE [Concomitant]
     Active Substance: ANASTROZOLE
     Dosage: 1 MG, 1 EVERY 1 DAYS
     Route: 065
  11. ATIVAN [Concomitant]
     Active Substance: LORAZEPAM
  12. CANNABIS SATIVA FLOWERING TOP [Concomitant]
     Active Substance: CANNABIS SATIVA FLOWERING TOP
  13. CAPECITABINE [Concomitant]
     Active Substance: CAPECITABINE
     Dosage: 500 MG, 2 EVERY 1 DAYS
     Route: 065
  14. FASLODEX [Concomitant]
     Active Substance: FULVESTRANT
     Route: 065
  15. GABAPENTIN [Concomitant]
     Active Substance: GABAPENTIN
     Dosage: 200 MG, 3 EVERY 1 DAY
     Route: 065
  16. IBRANCE [Concomitant]
     Active Substance: PALBOCICLIB
     Route: 065
  17. NINTEDANIB [Concomitant]
     Active Substance: NINTEDANIB
  18. RAMIPRIL [Concomitant]
     Active Substance: RAMIPRIL
     Dosage: 5 MG, 1 EVERY 1 DAYS
     Route: 065
  19. ROSUVASTATIN CALCIUM [Concomitant]
     Active Substance: ROSUVASTATIN CALCIUM
  20. TAMOXIFEN [Concomitant]
     Active Substance: TAMOXIFEN
  21. VALSARTAN [Concomitant]
     Active Substance: VALSARTAN
     Dosage: 80 MG, 1 EVERY 1 DAYS
     Route: 048
  22. XGEVA [Concomitant]
     Active Substance: DENOSUMAB
  23. ZOLEDRONIC ACID [Concomitant]
     Active Substance: ZOLEDRONIC ACID
     Dosage: 1 EVERY 1 YEARS
     Route: 065

REACTIONS (3)
  - Pulmonary oedema [Unknown]
  - Lung disorder [Unknown]
  - Intentional product use issue [Unknown]
